FAERS Safety Report 15111788 (Version 1)
Quarter: 2018Q3

REPORT INFORMATION
  Report Type: Spontaneous
  Country: IT (occurrence: IT)
  Receive Date: 20180705
  Receipt Date: 20180705
  Transmission Date: 20181010
  Serious: Yes (Other)
  Sender: FDA-Public Use
  Company Number: IT-TEVA-2018-IT-919121

PATIENT
  Age: 28 Year
  Sex: Male
  Weight: 73 kg

DRUGS (2)
  1. OXALIPLATIN. [Suspect]
     Active Substance: OXALIPLATIN
     Indication: HEREDITARY NON-POLYPOSIS COLORECTAL CANCER SYNDROME
     Route: 042
     Dates: start: 20171214, end: 20180329
  2. CAPECITABINE. [Suspect]
     Active Substance: CAPECITABINE
     Indication: HEREDITARY NON-POLYPOSIS COLORECTAL CANCER SYNDROME
     Route: 048
     Dates: start: 20171214, end: 20180329

REACTIONS (2)
  - Hyperbilirubinaemia [Recovering/Resolving]
  - Hypertransaminasaemia [Recovering/Resolving]

NARRATIVE: CASE EVENT DATE: 20180223
